FAERS Safety Report 5765843-0 (Version None)
Quarter: 2008Q2

REPORT INFORMATION
  Report Type: 
  Country: None (occurrence: None)
  Receive Date: 20080611
  Receipt Date: 20080529
  Transmission Date: 20081010
  Serious: Yes (Death)
  Sender: FDA-Public Use
  Company Number: FR-BRISTOL-MYERS SQUIBB COMPANY-14219315

PATIENT
  Age: 62 Year
  Sex: Male

DRUGS (6)
  1. CYCLOPHOSPHAMIDE [Suspect]
     Indication: BURKITT'S LYMPHOMA
     Route: 042
     Dates: start: 20061222, end: 20061224
  2. DOXORUBICIN HCL [Suspect]
     Indication: BURKITT'S LYMPHOMA
     Route: 042
     Dates: start: 20061222, end: 20061222
  3. ONCOVIN [Suspect]
     Indication: BURKITT'S LYMPHOMA
     Dosage: 2MG;IV;EVERY DAY, 21DEC06:21DEC06. 2MG;IV;EVERY DAY, 27DEC06:27DEC06.
     Route: 042
     Dates: start: 20061221, end: 20061227
  4. METHOTREXATE [Suspect]
     Indication: BURKITT'S LYMPHOMA
     Route: 042
     Dates: start: 20061221, end: 20061221
  5. PREDNISOLONE [Suspect]
     Indication: BURKITT'S LYMPHOMA
     Route: 048
     Dates: start: 20061221, end: 20061225
  6. MABTHERA [Suspect]
     Indication: BURKITT'S LYMPHOMA
     Dosage: 630MG;IV;EVERY DAY, 20DEC06:20DEC06. 630MG;IV;EVERY DAY, 26DEC06:26DEC06.
     Route: 042
     Dates: start: 20061220, end: 20061226

REACTIONS (3)
  - EPISTAXIS [None]
  - INTERSTITIAL LUNG DISEASE [None]
  - RENAL FAILURE [None]
